FAERS Safety Report 17739500 (Version 2)
Quarter: 2025Q3

REPORT INFORMATION
  Report Type: Spontaneous
  Country: EU (occurrence: EU)
  Receive Date: 20200504
  Receipt Date: 20250701
  Transmission Date: 20251020
  Serious: Yes (Hospitalization, Other)
  Sender: AUROBINDO
  Company Number: EU-BIAL-BIAL-07302

PATIENT
  Age: 7 Year
  Sex: Female

DRUGS (1)
  1. OMEPRAZOLE [Suspect]
     Active Substance: OMEPRAZOLE
     Indication: Product used for unknown indication
     Route: 065

REACTIONS (8)
  - Pneumonia [Recovered/Resolved]
  - Atypical pneumonia [Recovered/Resolved]
  - Bronchospasm [Recovered/Resolved]
  - Condition aggravated [Recovered/Resolved]
  - Cough [Recovered/Resolved]
  - Dyspnoea [Recovered/Resolved]
  - Oesophageal achalasia [Recovered/Resolved]
  - Rhinorrhoea [Recovered/Resolved]
